FAERS Safety Report 8396517-8 (Version None)
Quarter: 2012Q2

REPORT INFORMATION
  Report Type: 
  Country: None (occurrence: None)
  Receive Date: 20120530
  Receipt Date: 20120523
  Transmission Date: 20120825
  Serious: Yes (Hospitalization, Other)
  Sender: FDA-Public Use
  Company Number: CH-ROXANE LABORATORIES, INC.-2012-RO-01301RO

PATIENT
  Age: 78 Year
  Sex: Female

DRUGS (6)
  1. MARCUMAR [Suspect]
     Indication: PULMONARY EMBOLISM
  2. METHOTREXATE [Suspect]
     Indication: PSORIASIS
     Route: 048
  3. SPIRONOLACTONE [Suspect]
  4. SIMVASTATIN [Suspect]
  5. LUBRICANT EYE DROPS [Concomitant]
     Indication: DRY EYE
     Route: 031
  6. DILTIAZEM [Suspect]

REACTIONS (7)
  - ANAL HAEMORRHAGE [None]
  - RENAL FAILURE [None]
  - MUCOSAL INFLAMMATION [None]
  - DEHYDRATION [None]
  - TOXICITY TO VARIOUS AGENTS [None]
  - CHROMATURIA [None]
  - LEUKOPENIA [None]
